FAERS Safety Report 5974108-3 (Version None)
Quarter: 2008Q4

REPORT INFORMATION
  Report Type: 
  Country: None (occurrence: None)
  Receive Date: 20081201
  Receipt Date: 20081119
  Transmission Date: 20090506
  Serious: Yes (Hospitalization)
  Sender: FDA-Public Use
  Company Number: US-PFIZER INC-2008096115

PATIENT
  Sex: Male
  Weight: 87.1 kg

DRUGS (11)
  1. MARAVIROC [Suspect]
     Indication: HIV INFECTION
  2. RESCRIPTOR [Concomitant]
     Route: 048
     Dates: start: 20050823
  3. FENOFIBRATE [Concomitant]
     Route: 048
     Dates: start: 20071224
  4. DIDANOSINE [Concomitant]
     Route: 048
     Dates: start: 20051118
  5. GLIPIZIDE [Concomitant]
     Route: 048
     Dates: start: 20050807
  6. LIPITOR [Concomitant]
     Route: 048
     Dates: start: 20080504
  7. ACETYLSALICYLIC ACID SRT [Concomitant]
     Route: 048
     Dates: start: 20050526
  8. NITROGLYCERIN [Concomitant]
     Route: 048
     Dates: start: 20080929
  9. AMLODIPINE [Concomitant]
     Route: 048
     Dates: start: 20080414, end: 20081111
  10. OMEPRAZOLE [Concomitant]
     Route: 048
     Dates: start: 20050716
  11. KALETRA [Concomitant]
     Route: 048
     Dates: start: 20061229

REACTIONS (3)
  - ANGINA PECTORIS [None]
  - CORONARY ARTERY BYPASS [None]
  - CORONARY ARTERY OCCLUSION [None]
